FAERS Safety Report 10196723 (Version 1)
Quarter: 2014Q2

REPORT INFORMATION
  Report Type: Spontaneous
  Country: FR (occurrence: FR)
  Receive Date: 20140527
  Receipt Date: 20140527
  Transmission Date: 20141212
  Serious: Yes (Other)
  Sender: FDA-Public Use
  Company Number: FR-ASTRAZENECA-2014SE34420

PATIENT
  Age: 33 Year
  Sex: Female
  Weight: 61 kg

DRUGS (3)
  1. ROPIVACAINE [Suspect]
     Indication: POSTOPERATIVE ANALGESIA
     Dosage: 20 ML BILATERAL 0.75 %/4.9 MG/KG/300 MG
     Route: 053
  2. BUPIVACAINE [Concomitant]
     Indication: SPINAL ANAESTHESIA
     Route: 037
  3. SUFENTANIL [Concomitant]
     Indication: SPINAL ANAESTHESIA
     Route: 037

REACTIONS (5)
  - Overdose [Recovered/Resolved]
  - Toxicity to various agents [Recovered/Resolved]
  - Generalised tonic-clonic seizure [Recovered/Resolved]
  - Haemolysis [Recovered/Resolved]
  - Proteinuria [Recovered/Resolved]
